FAERS Safety Report 6687785-9 (Version None)
Quarter: 2010Q2

REPORT INFORMATION
  Report Type: 
  Country: None (occurrence: None)
  Receive Date: 20100420
  Receipt Date: 20100419
  Transmission Date: 20101027
  Serious: Yes (Other)
  Sender: FDA-Public Use
  Company Number: US-RB-007308-10

PATIENT
  Sex: Male

DRUGS (1)
  1. DELSYM ADULT ORANGE 5 OZ [Suspect]
     Dosage: DRANK THIS WHOLE BOTTLE
     Route: 048
     Dates: start: 20100401

REACTIONS (2)
  - DRUG ABUSE [None]
  - NO ADVERSE EVENT [None]
